FAERS Safety Report 19399980 (Version 2)
Quarter: 2021Q3

REPORT INFORMATION
  Report Type: Report from Study
  Country: DE (occurrence: DE)
  Receive Date: 20210610
  Receipt Date: 20210930
  Transmission Date: 20211014
  Serious: Yes (Other)
  Sender: FDA-Public Use
  Company Number: DE-TAKEDA-2021TUS034724

PATIENT
  Age: 48 Year
  Sex: Male

DRUGS (26)
  1. TEDUGLUTIDE [Suspect]
     Active Substance: TEDUGLUTIDE
     Indication: SHORT-BOWEL SYNDROME
     Dosage: 5 MILLIGRAM, QD
     Route: 058
     Dates: start: 20170505
  2. TEDUGLUTIDE [Suspect]
     Active Substance: TEDUGLUTIDE
     Dosage: 3.7 MILLIGRAM, QD
     Route: 065
     Dates: start: 20170505
  3. TEDUGLUTIDE [Suspect]
     Active Substance: TEDUGLUTIDE
     Indication: SHORT-BOWEL SYNDROME
     Dosage: 5 MILLIGRAM, QD
     Route: 058
     Dates: start: 20170505
  4. TEDUGLUTIDE [Suspect]
     Active Substance: TEDUGLUTIDE
     Dosage: 5 MILLIGRAM, QD
     Route: 058
     Dates: start: 20150905, end: 20171016
  5. TEDUGLUTIDE [Suspect]
     Active Substance: TEDUGLUTIDE
     Dosage: 0.500 UNK
     Route: 065
     Dates: start: 20150903, end: 20170316
  6. TEDUGLUTIDE [Suspect]
     Active Substance: TEDUGLUTIDE
     Dosage: 3.7 MILLIGRAM, QD
     Route: 065
     Dates: start: 20150903, end: 20170316
  7. TEDUGLUTIDE [Suspect]
     Active Substance: TEDUGLUTIDE
     Dosage: 3.7 MILLIGRAM, QD
     Route: 065
     Dates: start: 20150903, end: 20170316
  8. TEDUGLUTIDE [Suspect]
     Active Substance: TEDUGLUTIDE
     Dosage: 3.7 MILLIGRAM, QD
     Route: 065
     Dates: start: 20150903, end: 20170316
  9. TEDUGLUTIDE [Suspect]
     Active Substance: TEDUGLUTIDE
     Dosage: 3.7 MILLIGRAM, QD
     Route: 065
     Dates: start: 20170505
  10. TEDUGLUTIDE [Suspect]
     Active Substance: TEDUGLUTIDE
     Dosage: 5 MILLIGRAM, QD
     Route: 058
     Dates: start: 20150905, end: 20171016
  11. TEDUGLUTIDE [Suspect]
     Active Substance: TEDUGLUTIDE
     Dosage: 5 MILLIGRAM, QD
     Route: 058
     Dates: start: 20150905, end: 20171016
  12. TEDUGLUTIDE [Suspect]
     Active Substance: TEDUGLUTIDE
     Indication: SHORT-BOWEL SYNDROME
     Dosage: 5 MILLIGRAM, QD
     Route: 058
     Dates: start: 20170505
  13. TEDUGLUTIDE [Suspect]
     Active Substance: TEDUGLUTIDE
     Dosage: 0.500 UNK
     Route: 065
     Dates: start: 20150903, end: 20170316
  14. TEDUGLUTIDE [Suspect]
     Active Substance: TEDUGLUTIDE
     Dosage: 3.7 MILLIGRAM, QD
     Route: 065
     Dates: start: 20150903, end: 20170316
  15. LEVOGLUTAMIDE [Concomitant]
     Active Substance: GLUTAMINE
     Indication: VITAMIN B COMPLEX DEFICIENCY
     Dosage: 999 MILLIGRAM, QD
     Route: 048
     Dates: start: 20190618
  16. TEDUGLUTIDE [Suspect]
     Active Substance: TEDUGLUTIDE
     Dosage: 0.500 UNK
     Route: 065
     Dates: start: 20150903, end: 20170316
  17. TEDUGLUTIDE [Suspect]
     Active Substance: TEDUGLUTIDE
     Dosage: 0.500 UNK
     Route: 058
     Dates: start: 20150903, end: 20171016
  18. TEDUGLUTIDE [Suspect]
     Active Substance: TEDUGLUTIDE
     Dosage: 0.500 UNK
     Route: 058
     Dates: start: 20150903, end: 20171016
  19. TEDUGLUTIDE [Suspect]
     Active Substance: TEDUGLUTIDE
     Dosage: 3.7 MILLIGRAM, QD
     Route: 065
     Dates: start: 20170505
  20. TEDUGLUTIDE [Suspect]
     Active Substance: TEDUGLUTIDE
     Indication: SHORT-BOWEL SYNDROME
     Dosage: 5 MILLIGRAM, QD
     Route: 058
     Dates: start: 20170505
  21. TEDUGLUTIDE [Suspect]
     Active Substance: TEDUGLUTIDE
     Dosage: 5 MILLIGRAM, QD
     Route: 058
     Dates: start: 20150905, end: 20171016
  22. TEDUGLUTIDE [Suspect]
     Active Substance: TEDUGLUTIDE
     Dosage: 0.500 UNK
     Route: 065
     Dates: start: 20150903, end: 20170316
  23. TEDUGLUTIDE [Suspect]
     Active Substance: TEDUGLUTIDE
     Dosage: 0.500 UNK
     Route: 058
     Dates: start: 20150903, end: 20171016
  24. DEXFOSFOSERINE. [Concomitant]
     Active Substance: DEXFOSFOSERINE
     Indication: VITAMIN B COMPLEX DEFICIENCY
     Dosage: 999 MILLIGRAM, QD
     Route: 048
     Dates: start: 20190618
  25. TEDUGLUTIDE [Suspect]
     Active Substance: TEDUGLUTIDE
     Dosage: 0.500 UNK
     Route: 058
     Dates: start: 20150903, end: 20171016
  26. TEDUGLUTIDE [Suspect]
     Active Substance: TEDUGLUTIDE
     Dosage: 3.7 MILLIGRAM, QD
     Route: 065
     Dates: start: 20170505

REACTIONS (3)
  - Hydronephrosis [Recovered/Resolved]
  - Cholelithiasis [Not Recovered/Not Resolved]
  - Benign prostatic hyperplasia [Unknown]

NARRATIVE: CASE EVENT DATE: 202101
